FAERS Safety Report 12353555 (Version 1)
Quarter: 2016Q2

REPORT INFORMATION
  Report Type: Spontaneous
  Country: US (occurrence: US)
  Receive Date: 20160511
  Receipt Date: 20160511
  Transmission Date: 20160815
  Serious: Yes (Other)
  Sender: FDA-Public Use
  Company Number: US-HOSPIRA-3278462

PATIENT
  Age: 46 Year
  Sex: Female

DRUGS (3)
  1. DEXTROSE IN WATER [Concomitant]
     Active Substance: DEXTROSE\WATER
     Indication: BLOOD PRESSURE DECREASED
     Route: 041
  2. NORADRENALINE TARTRATE [Suspect]
     Active Substance: NOREPINEPHRINE BITARTRATE
     Indication: BLOOD PRESSURE IMMEASURABLE
     Dosage: 4MG/L
     Route: 041
  3. NORADRENALINE TARTRATE [Suspect]
     Active Substance: NOREPINEPHRINE BITARTRATE
     Indication: BLOOD PRESSURE DECREASED
     Route: 041

REACTIONS (2)
  - Conjunctival bleb [Recovered/Resolved]
  - Acute haemorrhagic conjunctivitis [Recovered/Resolved]
